FAERS Safety Report 6149764-X (Version None)
Quarter: 2009Q2

REPORT INFORMATION
  Report Type: 
  Country: None (occurrence: None)
  Receive Date: 20090407
  Receipt Date: 20090327
  Transmission Date: 20091009
  Serious: Yes (Death, Hospitalization, Other)
  Sender: FDA-Public Use
  Company Number: WAES 0802USA00123

PATIENT
  Age: 60 Year
  Sex: Male

DRUGS (13)
  1. CAP VORINOSTAT [Suspect]
     Indication: NON-SMALL CELL LUNG CANCER
     Dosage: 400 MG/DAILY PO
     Route: 048
     Dates: start: 20080128, end: 20080203
  2. CARBOPLATIN [Suspect]
     Indication: NON-SMALL CELL LUNG CANCER
     Dosage: 800 MG/1X IV
     Route: 042
     Dates: start: 20080201, end: 20080201
  3. PACLITAXEL [Suspect]
     Indication: NON-SMALL CELL LUNG CANCER
     Dosage: 300 MG/1X IV
     Route: 042
     Dates: start: 20080201, end: 20080201
  4. APPEBON TABLETS [Concomitant]
  5. BENADRYL [Concomitant]
  6. COMBIVENT [Concomitant]
  7. DUOVENT [Concomitant]
  8. MEDROL [Concomitant]
  9. ZANTAC [Concomitant]
  10. ACETAMINOPHEN [Concomitant]
  11. DEXAMETHASONE TAB [Concomitant]
  12. TERBUTALINE SULFATE [Concomitant]
  13. TRAMADOL HCL [Concomitant]

REACTIONS (13)
  - ACUTE RESPIRATORY DISTRESS SYNDROME [None]
  - AGITATION [None]
  - ANURIA [None]
  - CARDIO-RESPIRATORY ARREST [None]
  - CYANOSIS [None]
  - DEPRESSED LEVEL OF CONSCIOUSNESS [None]
  - HAEMATURIA [None]
  - HYPERCAPNIA [None]
  - MALIGNANT NEOPLASM PROGRESSION [None]
  - NON-SMALL CELL LUNG CANCER STAGE IV [None]
  - PULMONARY EMBOLISM [None]
  - RESTLESSNESS [None]
  - WAIST CIRCUMFERENCE INCREASED [None]
